FAERS Safety Report 4507014-1 (Version None)
Quarter: 2004Q4

REPORT INFORMATION
  Report Type: 
  Country: None (occurrence: None)
  Receive Date: 20041122
  Receipt Date: 20041014
  Transmission Date: 20050328
  Serious: No
  Sender: FDA-Public Use
  Company Number: US-MERCK-0410USA02210

PATIENT
  Age: 52 Year
  Sex: Female
  Weight: 59 kg

DRUGS (8)
  1. SYNTHROID [Concomitant]
     Route: 065
  2. NEURONTIN [Concomitant]
     Route: 065
  3. WELLBUTRIN [Concomitant]
     Route: 065
  4. DIOVAN [Concomitant]
     Route: 065
  5. ZYRTEC [Concomitant]
     Route: 065
  6. METOCLOPRAMIDE [Concomitant]
     Route: 065
  7. ZETIA [Suspect]
     Indication: HYPERLIPIDAEMIA
     Route: 048
     Dates: start: 20040101, end: 20041021
  8. ZETIA [Suspect]
     Indication: HYPERCHOLESTEROLAEMIA
     Route: 048
     Dates: start: 20040101, end: 20041021

REACTIONS (4)
  - BLOOD CREATINE PHOSPHOKINASE INCREASED [None]
  - HEADACHE [None]
  - MYALGIA [None]
  - NAUSEA [None]
